FAERS Safety Report 9415910 (Version 1)
Quarter: 2013Q3

REPORT INFORMATION
  Report Type: Spontaneous
  Country: US (occurrence: US)
  Receive Date: 20130724
  Receipt Date: 20130724
  Transmission Date: 20140515
  Serious: Yes (Death)
  Sender: FDA-Public Use
  Company Number: US-BIOGENIDEC-2013BI067146

PATIENT
  Age: 58 Year
  Sex: Female

DRUGS (5)
  1. AVONEX [Suspect]
     Indication: MULTIPLE SCLEROSIS
     Route: 030
     Dates: start: 20130305
  2. LASIX [Concomitant]
  3. ENTOCORT EC [Concomitant]
  4. AMPYRA [Concomitant]
  5. LYRICA [Concomitant]

REACTIONS (1)
  - Death [Fatal]
